FAERS Safety Report 15287605 (Version 1)
Quarter: 2018Q4

REPORT INFORMATION
  Report Type: Report from Study
  Country: ES (occurrence: ES)
  Receive Date: 20180817
  Receipt Date: 20180817
  Transmission Date: 20190204
  Serious: Yes (Hospitalization)
  Sender: FDA-Public Use
  Company Number: ES-TEVA-2018-ES-942071

PATIENT
  Age: 39 Year
  Sex: Male

DRUGS (4)
  1. ALPRAZOLAM. [Suspect]
     Active Substance: ALPRAZOLAM
     Route: 048
     Dates: start: 2007, end: 20071128
  2. ZAMENE 30 MG COMPRIMIDOS, 10 COMPRIMIDOS [Suspect]
     Active Substance: DEFLAZACORT
     Indication: FACIAL PARALYSIS
     Route: 048
     Dates: start: 20071128, end: 20071228
  3. ACETILCISTEINA RATIOPHARM 200 MG POLVO PARA SOLUCION ORAL EFG , 30 SOB [Suspect]
     Active Substance: ACETYLCYSTEINE
     Indication: RESPIRATORY TRACT INFECTION
     Route: 048
     Dates: start: 20071210
  4. AMOXICILINA SANDOZ 500 MG CAPSULAS EFG , 12 C?PSULAS [Suspect]
     Active Substance: AMOXICILLIN
     Indication: RESPIRATORY TRACT INFECTION
     Route: 048
     Dates: start: 20071210

REACTIONS (1)
  - Toxic epidermal necrolysis [Recovered/Resolved]

NARRATIVE: CASE EVENT DATE: 20071228
